FAERS Safety Report 19605852 (Version 1)
Quarter: 2021Q3

REPORT INFORMATION
  Report Type: Spontaneous
  Country: BR (occurrence: BR)
  Receive Date: 20210723
  Receipt Date: 20210723
  Transmission Date: 20211014
  Serious: Yes (Other)
  Sender: FDA-Public Use
  Company Number: BR-TAKEDA-2021TUS046085

PATIENT
  Age: 31 Year
  Sex: Female

DRUGS (2)
  1. VEDOLIZUMAB [Suspect]
     Active Substance: VEDOLIZUMAB
     Indication: PRODUCT USED FOR UNKNOWN INDICATION
     Dosage: UNK
     Route: 065
  2. DEFLAZACORTE [Concomitant]
     Active Substance: DEFLAZACORT
     Dosage: 60 MILLIGRAM

REACTIONS (3)
  - Rectal stenosis [Unknown]
  - Clostridium difficile infection [Unknown]
  - Crohn^s disease [Unknown]
